FAERS Safety Report 9032369 (Version 1)
Quarter: 2013Q1

REPORT INFORMATION
  Report Type: Spontaneous
  Country: AU (occurrence: None)
  Receive Date: 20130108
  Receipt Date: 20130108
  Transmission Date: 20140127
  Serious: Yes (Other)
  Sender: FDA-Public Use
  Company Number: AUR-APL-2013-00043

PATIENT
  Age: 27 Year
  Sex: Female

DRUGS (2)
  1. RISPERIDONE (RISPERIDONE) [Suspect]
     Indication: SCHIZOPHRENIA
     Dosage: 1 PER DAY.
     Route: 048
  2. RISPERIDONE (RISPERIDONE) [Suspect]
     Indication: SCHIZOPHRENIA
     Route: 030

REACTIONS (3)
  - Hyperprolactinaemia [None]
  - Breast tenderness [None]
  - Galactorrhoea [None]
